FAERS Safety Report 6498973-9 (Version None)
Quarter: 2009Q4

REPORT INFORMATION
  Report Type: 
  Country: None (occurrence: None)
  Receive Date: 20091215
  Receipt Date: 20091201
  Transmission Date: 20100525
  Serious: Yes (Hospitalization)
  Sender: FDA-Public Use
  Company Number: TR-MYLANLABS-2009S1020677

PATIENT
  Age: 53 Year
  Sex: Female

DRUGS (4)
  1. DORSILON                           /02348301/ [Suspect]
     Indication: HEADACHE
     Dosage: CONTAINED 200MG MEPHENOXALONE AND 450MG OF PARACETAMOL
  2. DILTIAZEM [Suspect]
     Indication: HYPERTENSION
  3. AMITRIPTYLINE [Concomitant]
  4. DICLOFENAC POTASSIUM [Concomitant]

REACTIONS (1)
  - ACUTE GENERALISED EXANTHEMATOUS PUSTULOSIS [None]
